FAERS Safety Report 21657758 (Version 1)
Quarter: 2022Q4

REPORT INFORMATION
  Report Type: Spontaneous
  Country: FR (occurrence: FR)
  Receive Date: 20221129
  Receipt Date: 20221129
  Transmission Date: 20230112
  Serious: Yes (Death, Hospitalization)
  Sender: FDA-Public Use
  Company Number: FR-BIOCODEX-2014-080

PATIENT
  Age: 77 Year
  Sex: Female

DRUGS (7)
  1. TRAMADOL [Suspect]
     Active Substance: TRAMADOL
     Indication: Back pain
     Dosage: 225 MILLIGRAM, QD
     Route: 065
  2. ACETAMINOPHEN [Suspect]
     Active Substance: ACETAMINOPHEN
     Indication: Back pain
     Dosage: 6.6 GRAM, QD
     Route: 065
  3. DICLOFENAC SODIUM\MISOPROSTOL [Suspect]
     Active Substance: DICLOFENAC SODIUM\MISOPROSTOL
     Indication: Back pain
     Dosage: PARACETAMOL50MG /MISOPROSTOL:0,2MG DAILY
     Route: 065
  4. RILMENIDINE [Concomitant]
     Active Substance: RILMENIDINE
     Indication: Hypertension
     Dosage: 2 MILLIGRAM, QD
     Route: 065
  5. FLUINDIONE [Concomitant]
     Active Substance: FLUINDIONE
     Indication: Atrial fibrillation
     Dosage: 35 MILLIGRAM, QD
     Route: 048
  6. HYDROCHLOROTHIAZIDE\LOSARTAN [Concomitant]
     Active Substance: HYDROCHLOROTHIAZIDE\LOSARTAN
     Indication: Hypertension
     Dosage: LOSARTAN 100 MG,HYDROCHLOROTHIAZIDE 25 MG
     Route: 065
  7. INSULIN NOS [Concomitant]
     Active Substance: INSULIN NOS
     Indication: Diabetes mellitus
     Dosage: UNK
     Route: 065

REACTIONS (1)
  - Hepatitis fulminant [Fatal]

NARRATIVE: CASE EVENT DATE: 20130101
